FAERS Safety Report 7618438-8 (Version None)
Quarter: 2011Q3

REPORT INFORMATION
  Report Type: 
  Country: None (occurrence: None)
  Receive Date: 20110718
  Receipt Date: 20110713
  Transmission Date: 20111222
  Serious: Yes (Hospitalization)
  Sender: FDA-Public Use
  Company Number: JP-SANOFI-AVENTIS-2011SA024501

PATIENT
  Age: 32 Year
  Sex: Male
  Weight: 88 kg

DRUGS (9)
  1. PLAVIX [Suspect]
     Route: 048
     Dates: start: 20091229
  2. ASPIRIN [Concomitant]
     Route: 048
     Dates: start: 20091228, end: 20091228
  3. CRESTOR [Concomitant]
     Route: 048
     Dates: start: 20100109
  4. CRESTOR [Concomitant]
     Route: 048
     Dates: start: 20100105, end: 20100108
  5. ASPIRIN [Concomitant]
     Route: 048
     Dates: start: 20091229
  6. CRESTOR [Concomitant]
     Route: 048
     Dates: start: 20091228, end: 20100104
  7. PROMAC /JPN/ [Concomitant]
     Route: 048
     Dates: start: 20091229
  8. ISOSORBIDE DINITRATE [Concomitant]
     Route: 048
     Dates: start: 20100420
  9. PLAVIX [Suspect]
     Route: 048
     Dates: start: 20091228, end: 20091228

REACTIONS (1)
  - IN-STENT CORONARY ARTERY RESTENOSIS [None]
